FAERS Safety Report 4330024-4 (Version None)
Quarter: 2004Q1

REPORT INFORMATION
  Report Type: 
  Country: None (occurrence: None)
  Receive Date: 20040329
  Receipt Date: 20040317
  Transmission Date: 20041129
  Serious: Yes (Disabling)
  Sender: FDA-Public Use
  Company Number: 2003UW16304

PATIENT
  Age: 62 Year
  Sex: Male
  Weight: 34.2466 kg

DRUGS (8)
  1. CRESTOR [Suspect]
     Indication: BLOOD CHOLESTEROL INCREASED
     Dosage: 20 MG QD PO
     Route: 048
     Dates: start: 20030811, end: 20030914
  2. CRESTOR [Suspect]
     Indication: LOW DENSITY LIPOPROTEIN DECREASED
     Dosage: 20 MG QD PO
     Route: 048
     Dates: start: 20030811, end: 20030914
  3. CRESTOR [Suspect]
     Indication: BLOOD CHOLESTEROL INCREASED
     Dosage: 20 MG QD PO
     Route: 048
     Dates: start: 20031027, end: 20031120
  4. CRESTOR [Suspect]
     Indication: LOW DENSITY LIPOPROTEIN DECREASED
     Dosage: 20 MG QD PO
     Route: 048
     Dates: start: 20031027, end: 20031120
  5. CRESTOR [Suspect]
     Indication: BLOOD CHOLESTEROL INCREASED
     Dosage: 20 MG QD PO
     Route: 048
     Dates: start: 20031217
  6. CRESTOR [Suspect]
     Indication: LOW DENSITY LIPOPROTEIN DECREASED
     Dosage: 20 MG QD PO
     Route: 048
     Dates: start: 20031217
  7. LIPIDIL [Suspect]
     Indication: BLOOD CHOLESTEROL INCREASED
     Dates: start: 20030915, end: 20031026
  8. LIPIDIL [Suspect]
     Indication: LOW DENSITY LIPOPROTEIN DECREASED
     Dates: start: 20030915, end: 20031026

REACTIONS (2)
  - COUGH [None]
  - DYSPNOEA [None]
